FAERS Safety Report 8565038 (Version 2)
Quarter: 2013Q2

REPORT INFORMATION
  Report Type: Spontaneous
  Country: US (occurrence: US)
  Receive Date: 20120516
  Receipt Date: 20130502
  Transmission Date: 20140414
  Serious: Yes (Other)
  Sender: FDA-Public Use
  Company Number: US-ALEXION-A201200434

PATIENT
  Age: 60 Year
  Sex: Female

DRUGS (7)
  1. SOLIRIS 300MG [Suspect]
     Indication: PAROXYSMAL NOCTURNAL HAEMOGLOBINURIA
     Dosage: 600 MG, QW
     Route: 042
     Dates: start: 201009
  2. SOLIRIS 300MG [Suspect]
     Dosage: 900 MG, Q2W
     Route: 042
     Dates: start: 20100909
  3. ACTONEL [Concomitant]
     Indication: INTERVERTEBRAL DISC DEGENERATION
     Dosage: UNK, Q MONTH
  4. VITAMIN D3 [Concomitant]
     Dosage: UNK, QD
  5. MAGNESIUM [Concomitant]
     Dosage: UNK, QD
  6. FOLIC ACID [Concomitant]
     Dosage: UNK, QD
  7. CYCLOSPORIN [Concomitant]
     Dosage: UNK

REACTIONS (6)
  - Dehydration [Recovered/Resolved]
  - Fatigue [Unknown]
  - Back pain [Recovered/Resolved]
  - Vomiting [Recovered/Resolved]
  - Diarrhoea [Recovered/Resolved]
  - Viral infection [Recovered/Resolved]
